FAERS Safety Report 10685335 (Version 1)
Quarter: 2014Q4

REPORT INFORMATION
  Report Type: Spontaneous
  Country: BR (occurrence: BR)
  Receive Date: 20141231
  Receipt Date: 20141231
  Transmission Date: 20150529
  Serious: Yes (Other)
  Sender: FDA-Public Use
  Company Number: BR-ABBVIE-14P-020-1327641-00

PATIENT
  Age: 61 Year
  Sex: Female
  Weight: 58 kg

DRUGS (5)
  1. GARDENAL [Concomitant]
     Active Substance: PHENOBARBITAL
     Dosage: 100 MG; AT NIGHT
     Route: 048
     Dates: start: 201405
  2. GARDENAL [Concomitant]
     Active Substance: PHENOBARBITAL
     Indication: EPILEPSY
     Route: 048
  3. LAMITOR [Concomitant]
     Active Substance: LAMOTRIGINE
     Indication: RELAXATION THERAPY
     Dosage: 50 MG; AT NIGHT
     Route: 048
     Dates: start: 2012
  4. DEPAKOTE [Suspect]
     Active Substance: DIVALPROEX SODIUM
     Indication: PETIT MAL EPILEPSY
     Dosage: 1000 MG; IN THE MORNING AND AT NIGHT
     Route: 048
  5. DEPAKOTE [Suspect]
     Active Substance: DIVALPROEX SODIUM
     Route: 048
     Dates: start: 201405

REACTIONS (4)
  - Petit mal epilepsy [Not Recovered/Not Resolved]
  - Product container issue [Unknown]
  - Drug level decreased [Recovered/Resolved]
  - Amnesia [Unknown]

NARRATIVE: CASE EVENT DATE: 201405
